FAERS Safety Report 4809766-X (Version None)
Quarter: 2005Q4

REPORT INFORMATION
  Report Type: 
  Country: None (occurrence: None)
  Receive Date: 20051024
  Receipt Date: 20051010
  Transmission Date: 20060501
  Serious: Yes (Hospitalization, Other)
  Sender: FDA-Public Use
  Company Number: 2005141115

PATIENT
  Sex: Female
  Weight: 63.5036 kg

DRUGS (5)
  1. DETROL LA [Suspect]
     Indication: HYPERTONIC BLADDER
     Dosage: 4 MG (4 MG, 1 IN 1 D), ORAL
     Route: 048
     Dates: start: 19990101
  2. CELEBREX [Concomitant]
  3. ARTHRITIS ASSIST (CHONDROITIN SULFATE, CURCUMIN, GLUCOSAMINE HYDROCHLO [Concomitant]
  4. DIOVAN HCT [Concomitant]
  5. ESTROGENS SOL/INJ [Concomitant]

REACTIONS (3)
  - BENIGN RENAL NEOPLASM [None]
  - DRUG INEFFECTIVE [None]
  - URINARY INCONTINENCE [None]
